FAERS Safety Report 24693074 (Version 1)
Quarter: 2024Q4

REPORT INFORMATION
  Report Type: Spontaneous
  Country: CA (occurrence: CA)
  Receive Date: 20241203
  Receipt Date: 20241203
  Transmission Date: 20250114
  Serious: Yes (Hospitalization, Other)
  Sender: PFIZER
  Company Number: CA-PFIZER INC-202400275238

PATIENT
  Age: 71 Year
  Sex: Male

DRUGS (2)
  1. ABROCITINIB [Suspect]
     Active Substance: ABROCITINIB
     Indication: Nodule
     Dosage: 100 MG, 1X/DAY
     Dates: start: 202408, end: 2024
  2. ABROCITINIB [Suspect]
     Active Substance: ABROCITINIB
     Indication: Skin abrasion

REACTIONS (2)
  - Cholecystitis acute [Unknown]
  - Off label use [Unknown]

NARRATIVE: CASE EVENT DATE: 20240101
